FAERS Safety Report 20513451 (Version 1)
Quarter: 2022Q1

REPORT INFORMATION
  Report Type: Spontaneous
  Country: US (occurrence: US)
  Receive Date: 20220224
  Receipt Date: 20220224
  Transmission Date: 20220423
  Serious: No
  Sender: FDA-Public Use
  Company Number: US-AMNEAL PHARMACEUTICALS-2021-AMRX-03968

PATIENT
  Sex: Male

DRUGS (5)
  1. RYTARY [Suspect]
     Active Substance: CARBIDOPA\LEVODOPA
     Indication: Product used for unknown indication
     Dosage: 36.25/145MG, 1 CAPSULES, 2X/DAY
     Route: 048
     Dates: start: 2021
  2. RYTARY [Suspect]
     Active Substance: CARBIDOPA\LEVODOPA
     Dosage: 36.25/145MG, 7 CAPSULES, DAILY
     Route: 048
  3. RYTARY [Suspect]
     Active Substance: CARBIDOPA\LEVODOPA
     Dosage: 61.25/245MG, 8 CAPSULES, DAILY
     Route: 048
  4. RYTARY [Suspect]
     Active Substance: CARBIDOPA\LEVODOPA
     Dosage: 61.25/245MG, 2 CAPSULES, 6X/DAY
     Route: 048
     Dates: start: 20210104, end: 2021
  5. RYTARY [Suspect]
     Active Substance: CARBIDOPA\LEVODOPA
     Dosage: 61.25/245MG, 02 CAP 6/DAY WITH 61.25/245MG CAP OR 36.25/145MG, 02 CAPS IN MIDDLE OF NIGHT
     Route: 048
     Dates: start: 2021, end: 2021

REACTIONS (2)
  - Weight decreased [Unknown]
  - Prescribed overdose [Unknown]

NARRATIVE: CASE EVENT DATE: 20210101
